FAERS Safety Report 23951331 (Version 2)
Quarter: 2024Q2

REPORT INFORMATION
  Report Type: Spontaneous
  Country: US (occurrence: US)
  Receive Date: 20240607
  Receipt Date: 20240610
  Transmission Date: 20240716
  Serious: Yes (Hospitalization, Other)
  Sender: FDA-Public Use
  Company Number: US-PFIZER INC-PV202400074712

PATIENT
  Age: 83 Year
  Sex: Male
  Weight: 75.2 kg

DRUGS (3)
  1. CRIZOTINIB [Suspect]
     Active Substance: CRIZOTINIB
     Indication: Lung carcinoma cell type unspecified stage IV
     Dosage: UNK
     Dates: start: 20150902, end: 201912
  2. CRIZOTINIB [Suspect]
     Active Substance: CRIZOTINIB
     Indication: Malignant neoplasm of pleura
  3. CRIZOTINIB [Suspect]
     Active Substance: CRIZOTINIB
     Indication: Lung adenocarcinoma

REACTIONS (3)
  - Seizure [Unknown]
  - Neoplasm progression [Unknown]
  - Hypoaesthesia [Unknown]

NARRATIVE: CASE EVENT DATE: 20191213
